FAERS Safety Report 4724324-3 (Version None)
Quarter: 2005Q3

REPORT INFORMATION
  Report Type: 
  Country: None (occurrence: None)
  Receive Date: 20050722
  Receipt Date: 20050722
  Transmission Date: 20060218
  Serious: Yes (Hospitalization, Other)
  Sender: FDA-Public Use
  Company Number: None

PATIENT
  Sex: Female
  Weight: 76.5 kg

DRUGS (8)
  1. GEMCITABINE [Suspect]
     Indication: UTERINE LEIOMYOSARCOMA
     Dosage: 900MG/M2 DAY 1 + 8
     Dates: start: 20050707, end: 20050707
  2. DOCETAXEL [Suspect]
     Dosage: 100MG/M2 2 DAY 1
     Dates: start: 20050707, end: 20050707
  3. NEULASTA [Suspect]
     Dosage: 6MG DAY 9
  4. CLONAZEPAM [Concomitant]
  5. LAMOTRIGINE [Concomitant]
  6. PERCOCET [Concomitant]
  7. PROZAC [Concomitant]
  8. SEROQUEL [Concomitant]

REACTIONS (7)
  - CONDITION AGGRAVATED [None]
  - GASTRIC DISORDER [None]
  - GASTRIC ULCER [None]
  - HAEMATEMESIS [None]
  - HAEMATOCRIT DECREASED [None]
  - PANCREATIC MASS [None]
  - WRONG DRUG ADMINISTERED [None]
